FAERS Safety Report 21355805 (Version 1)
Quarter: 2022Q3

REPORT INFORMATION
  Report Type: Spontaneous
  Country: PL (occurrence: PL)
  Receive Date: 20220920
  Receipt Date: 20220920
  Transmission Date: 20221027
  Serious: Yes (Hospitalization, Other)
  Sender: FDA-Public Use
  Company Number: PL-002147023-NVSC2022PL207824

PATIENT

DRUGS (7)
  1. RUXOLITINIB [Suspect]
     Active Substance: RUXOLITINIB
     Indication: Myelofibrosis
     Dosage: 20 MG, BID (2X20 MG)
     Route: 065
     Dates: start: 2018
  2. RUXOLITINIB [Suspect]
     Active Substance: RUXOLITINIB
     Dosage: 15 MG, BID (2X15 MG) (AFTER THE 3RD MONTH OF TREATMENT)
     Route: 065
  3. RUXOLITINIB [Suspect]
     Active Substance: RUXOLITINIB
     Dosage: 20 MG, BID (2X20 MG) (AFTER THE 6TH MONTH OF TREATMENT)
     Route: 065
  4. RUXOLITINIB [Suspect]
     Active Substance: RUXOLITINIB
     Dosage: 15 MG, BID (2X15 MG) (AFTER THE 12TH MONTH OF TREATMENT)
     Route: 065
  5. RUXOLITINIB [Suspect]
     Active Substance: RUXOLITINIB
     Dosage: 10 MG, BID (2 X 5 MG IN THE MORNING AND 2 X 5 MG IN THE EVENING) (AFTER 2 YEARS OF TREATMENT)
     Route: 065
  6. RUXOLITINIB [Suspect]
     Active Substance: RUXOLITINIB
     Dosage: 5 MG, BID (2 X 5 MG/DAY) (AFTER 3 YEARS OF TREATMENT)
     Route: 065
  7. ACYCLOVIR [Concomitant]
     Active Substance: ACYCLOVIR
     Indication: Product used for unknown indication
     Dosage: 800 MG, BID (2X800MG)
     Route: 065

REACTIONS (8)
  - Neuralgia [Unknown]
  - Urinary bladder haemorrhage [Unknown]
  - Infection [Unknown]
  - Therapeutic response decreased [Unknown]
  - Pneumonia [Unknown]
  - Splenomegaly [Unknown]
  - Varicella zoster virus infection [Unknown]
  - Platelet count decreased [Unknown]
